FAERS Safety Report 7233346-2 (Version None)
Quarter: 2011Q1

REPORT INFORMATION
  Report Type: 
  Country: None (occurrence: None)
  Receive Date: 20110119
  Receipt Date: 20110113
  Transmission Date: 20110831
  Serious: Yes (Death, Hospitalization)
  Sender: FDA-Public Use
  Company Number: PHHY2011US02792

PATIENT

DRUGS (1)
  1. VANCOMYCIN [Suspect]
     Dosage: UNK

REACTIONS (2)
  - NEPHROPATHY TOXIC [None]
  - INFECTION [None]
